FAERS Safety Report 5066834-8 (Version None)
Quarter: 2006Q3

REPORT INFORMATION
  Report Type: 
  Country: None (occurrence: None)
  Receive Date: 20060801
  Receipt Date: 20060609
  Transmission Date: 20061208
  Serious: Yes (Life-Threatening)
  Sender: FDA-Public Use
  Company Number: JP-AVENTIS-200611801JP

PATIENT
  Age: 40 Year
  Sex: Male
  Weight: 70 kg

DRUGS (11)
  1. TAXOTERE [Suspect]
     Indication: LUNG NEOPLASM MALIGNANT
     Route: 041
     Dates: start: 20060607, end: 20060607
  2. TAXOTERE [Suspect]
     Indication: METASTASES TO CENTRAL NERVOUS SYSTEM
     Route: 041
     Dates: start: 20060607, end: 20060607
  3. DECADRON [Concomitant]
     Indication: PREMEDICATION
     Route: 041
     Dates: start: 20060607, end: 20060607
  4. ZANTAC [Concomitant]
     Indication: PREMEDICATION
     Dosage: DOSE: 1 AMPULE
     Route: 041
     Dates: start: 20060607, end: 20060607
  5. KYTRIL [Concomitant]
     Indication: PREMEDICATION
     Dosage: DOSE: 1 AMPULE
     Route: 041
     Dates: start: 20060607, end: 20060607
  6. RADIOTHERAPY [Concomitant]
     Indication: LUNG NEOPLASM MALIGNANT
  7. RADIOTHERAPY [Concomitant]
     Indication: METASTASES TO CENTRAL NERVOUS SYSTEM
  8. LOXONIN [Concomitant]
  9. MS CONTIN [Concomitant]
  10. ACINON [Concomitant]
  11. DEPAKENE [Concomitant]

REACTIONS (5)
  - BLOOD PRESSURE DECREASED [None]
  - HYPERHIDROSIS [None]
  - NAUSEA [None]
  - SHOCK [None]
  - VOMITING [None]
